FAERS Safety Report 6410124-5 (Version None)
Quarter: 2009Q4

REPORT INFORMATION
  Report Type: 
  Country: None (occurrence: None)
  Receive Date: 20091022
  Receipt Date: 20091012
  Transmission Date: 20100525
  Serious: Yes (Hospitalization)
  Sender: FDA-Public Use
  Company Number: US-ROCHE-642710

PATIENT
  Sex: Female
  Weight: 49.4 kg

DRUGS (2)
  1. CAPECITABINE [Suspect]
     Dosage: KEPT OFF TEMPORARILY.
     Route: 048
     Dates: start: 20090401, end: 20090928
  2. TYKERB [Concomitant]
     Indication: BREAST CANCER
     Dosage: FREQUENCY: 2 TABLETS DAILY X 3 WEEKS
     Route: 048
     Dates: start: 20090319

REACTIONS (4)
  - DIARRHOEA [None]
  - MALAISE [None]
  - PANCREATITIS [None]
  - WEIGHT DECREASED [None]
